FAERS Safety Report 9767488 (Version 1)
Quarter: 2013Q4

REPORT INFORMATION
  Report Type: Spontaneous
  Country: US (occurrence: US)
  Receive Date: 20131217
  Receipt Date: 20131217
  Transmission Date: 20140711
  Serious: Yes (Hospitalization)
  Sender: FDA-Public Use
  Company Number: US-SA-2013SA129959

PATIENT
  Age: 56 Year
  Sex: Female

DRUGS (1)
  1. PASTEURIZED HUMAN RABIES IMMUNOGLOBULIN [Suspect]
     Indication: IMMUNISATION
     Route: 065
     Dates: start: 20131106, end: 20131106

REACTIONS (3)
  - Cellulitis [Unknown]
  - Swelling [Recovered/Resolved]
  - Skin lesion [Unknown]
